FAERS Safety Report 23635507 (Version 1)
Quarter: 2024Q1

REPORT INFORMATION
  Report Type: Report from Study
  Country: US (occurrence: US)
  Receive Date: 20240315
  Receipt Date: 20240315
  Transmission Date: 20240410
  Serious: No
  Sender: FDA-Public Use
  Company Number: US-LFBP-2023000064

PATIENT
  Age: 13 Year
  Sex: Male

DRUGS (3)
  1. SEVENFACT [Suspect]
     Active Substance: COAGULATION FACTOR VIIA RECOMBINANT HUMAN-JNCW
     Indication: Muscle haemorrhage
     Dosage: INITIAL DOSE OF 225 MCG/KG, THEN 2 DOSES OF 75 MCG/KG
     Route: 041
  2. EMICIZUMAB [Concomitant]
     Active Substance: EMICIZUMAB
     Indication: Immune tolerance induction
     Dosage: 100 UNITS/KG 3 TIMES PER WEEK
     Route: 065
  3. ANTIHEMOPHILIC FACTOR, HUMAN RECOMBINANT [Concomitant]
     Active Substance: ANTIHEMOPHILIC FACTOR, HUMAN RECOMBINANT
     Indication: Immune tolerance induction
     Dosage: 100 UNITS/KG 3 TIMES PER WEEK
     Route: 065

REACTIONS (2)
  - Drug ineffective [Unknown]
  - No adverse event [Unknown]
